FAERS Safety Report 6790374-9 (Version None)
Quarter: 2010Q2

REPORT INFORMATION
  Report Type: 
  Country: None (occurrence: None)
  Receive Date: 20100624
  Receipt Date: 20100616
  Transmission Date: 20101027
  Serious: Yes (Other)
  Sender: FDA-Public Use
  Company Number: PHHY2009SE38631

PATIENT
  Sex: Female
  Weight: 70 kg

DRUGS (5)
  1. ZELMAC [Suspect]
     Indication: CONSTIPATION
     Dosage: 12 MG DAILY
     Route: 048
     Dates: start: 20090701
  2. OMEPRAZOLE [Concomitant]
     Dosage: 20 MG DAILY
     Route: 048
  3. FOLACIN [Concomitant]
     Indication: FOLATE DEFICIENCY
     Dosage: 5 MG DAILY
     Route: 048
  4. LAMOTRIGINE [Concomitant]
     Indication: EPILEPSY
     Dosage: 600 MG DAILY
     Route: 048
  5. EFFEXOR [Concomitant]
     Indication: ANXIETY
     Dosage: 50 MG DAILY
     Route: 048

REACTIONS (4)
  - CAESAREAN SECTION [None]
  - DRUG EXPOSURE DURING PREGNANCY [None]
  - NORMAL NEWBORN [None]
  - PREGNANCY [None]
